FAERS Safety Report 16364103 (Version 2)
Quarter: 2019Q4

REPORT INFORMATION
  Report Type: Report from Study
  Country: TW (occurrence: TW)
  Receive Date: 20190528
  Receipt Date: 20191009
  Transmission Date: 20200122
  Serious: Yes (Other)
  Sender: FDA-Public Use
  Company Number: TW-BIOMARINAP-TW-2019-123857

PATIENT
  Age: 7 Year
  Sex: Male
  Weight: 19.9 kg

DRUGS (3)
  1. DIPHENHYDRAMINE. [Concomitant]
     Active Substance: DIPHENHYDRAMINE
     Indication: ANTIALLERGIC THERAPY
     Dates: start: 20181108
  2. HYDROCORTISONE. [Concomitant]
     Active Substance: HYDROCORTISONE
     Indication: BLOOD CORTISOL
     Dates: start: 20181108
  3. VIMIZIM [Suspect]
     Active Substance: ELOSULFASE ALFA
     Indication: MUCOPOLYSACCHARIDOSIS IV
     Dosage: UNK, QW
     Route: 042
     Dates: start: 20181108

REACTIONS (1)
  - Gastritis [Recovered/Resolved]

NARRATIVE: CASE EVENT DATE: 20190522
